FAERS Safety Report 4280773-1 (Version None)
Quarter: 2004Q1

REPORT INFORMATION
  Report Type: 
  Country: None (occurrence: None)
  Receive Date: 20040127
  Receipt Date: 20040114
  Transmission Date: 20041129
  Serious: Yes (Hospitalization)
  Sender: FDA-Public Use
  Company Number: FE12004-0019(0)

PATIENT
  Age: 32 Year
  Sex: Female

DRUGS (1)
  1. PARAGARD T380A (INTRAUTERINE CONTRACEPTIVES) (UTERINE) [Suspect]
     Indication: CONTRACEPTION
     Dosage: INTRA-UTERINE
     Route: 015
     Dates: start: 20030901, end: 20031228

REACTIONS (2)
  - ABSCESS [None]
  - UTERINE DISORDER [None]
